FAERS Safety Report 11736772 (Version 1)
Quarter: 2015Q4

REPORT INFORMATION
  Report Type: Spontaneous
  Country: US (occurrence: US)
  Receive Date: 20151113
  Receipt Date: 20151113
  Transmission Date: 20160304
  Serious: Yes (Other)
  Sender: FDA-Public Use
  Company Number: US-JNJFOC-20151101812

PATIENT
  Sex: Female

DRUGS (3)
  1. LEVAQUIN [Suspect]
     Active Substance: LEVOFLOXACIN
     Indication: HERNIA REPAIR
     Route: 042
     Dates: start: 20110111
  2. LEVAQUIN [Suspect]
     Active Substance: LEVOFLOXACIN
     Indication: HERNIA REPAIR
     Route: 042
     Dates: start: 201105
  3. LEVAQUIN [Suspect]
     Active Substance: LEVOFLOXACIN
     Indication: HERNIA REPAIR
     Route: 042
     Dates: start: 201112

REACTIONS (3)
  - Ataxia [Not Recovered/Not Resolved]
  - Skin discolouration [Not Recovered/Not Resolved]
  - Neuropathy peripheral [Not Recovered/Not Resolved]

NARRATIVE: CASE EVENT DATE: 2011
